FAERS Safety Report 6386338-X (Version None)
Quarter: 2009Q4

REPORT INFORMATION
  Report Type: 
  Country: None (occurrence: None)
  Receive Date: 20091002
  Receipt Date: 20090925
  Transmission Date: 20100525
  Serious: Yes (Hospitalization)
  Sender: FDA-Public Use
  Company Number: US-JNJFOC-20090907435

PATIENT
  Age: 28 Year
  Sex: Male
  Weight: 148.15 kg

DRUGS (20)
  1. PALIPERIDONE [Suspect]
     Indication: SCHIZOPHRENIA
     Route: 048
  2. LAMICTAL [Concomitant]
  3. GLYBURIDE [Concomitant]
  4. TENORMIN [Concomitant]
  5. CLONAZEPAM [Concomitant]
  6. CLONAZEPAM [Concomitant]
  7. REGLAN [Concomitant]
  8. SINGULAIR [Concomitant]
  9. NEURONTIN [Concomitant]
  10. METHOCARBAMOL [Concomitant]
  11. PHENAZOPYRIDINE HCL TAB [Concomitant]
  12. WELLBUTRIN [Concomitant]
  13. SEROQUEL [Concomitant]
  14. SEROQUEL [Concomitant]
  15. SEROQUEL [Concomitant]
  16. SIMVASTATIN [Concomitant]
  17. ASPIRIN [Concomitant]
  18. PROZAC [Concomitant]
  19. SENNA [Concomitant]
  20. PROMETHAZINE [Concomitant]

REACTIONS (2)
  - SCHIZOAFFECTIVE DISORDER [None]
  - SUICIDAL IDEATION [None]
